FAERS Safety Report 12836743 (Version 1)
Quarter: 2016Q4

REPORT INFORMATION
  Report Type: Spontaneous
  Country: US (occurrence: US)
  Receive Date: 20161011
  Receipt Date: 20161011
  Transmission Date: 20170207
  Serious: Yes (Hospitalization, Other)
  Sender: FDA-Public Use
  Company Number: US-AMGEN-USASP2016136277

PATIENT
  Age: 69 Year
  Sex: Male

DRUGS (1)
  1. NEULASTA [Suspect]
     Active Substance: PEGFILGRASTIM
     Indication: PRODUCT USED FOR UNKNOWN INDICATION
     Dosage: UNK UNK, AFTER CHEMO
     Route: 065
     Dates: start: 201608

REACTIONS (12)
  - Thrombosis [Unknown]
  - Muscle disorder [Recovering/Resolving]
  - Pneumonia [Unknown]
  - Loss of consciousness [Unknown]
  - Pyrexia [Unknown]
  - Respiratory failure [Unknown]
  - Mobility decreased [Unknown]
  - Hospitalisation [Recovered/Resolved]
  - Bacterial infection [Recovering/Resolving]
  - Cellulitis [Recovering/Resolving]
  - Asthenia [Recovering/Resolving]
  - Decubitus ulcer [Recovering/Resolving]

NARRATIVE: CASE EVENT DATE: 2016
